FAERS Safety Report 20519109 (Version 2)
Quarter: 2022Q1

REPORT INFORMATION
  Report Type: Spontaneous
  Country: US (occurrence: US)
  Receive Date: 20220225
  Receipt Date: 20220314
  Transmission Date: 20220423
  Serious: Yes (Hospitalization)
  Sender: FDA-Public Use
  Company Number: US-GW PHARMA-202202USGW00842

PATIENT
  Sex: Female

DRUGS (4)
  1. EPIDIOLEX [Suspect]
     Active Substance: CANNABIDIOL
     Indication: Epilepsy
     Dosage: 500 MILLIGRAM, DOSE INCREASE
  2. EPIDIOLEX [Suspect]
     Active Substance: CANNABIDIOL
     Indication: Epilepsy
     Dosage: ADDITIONAL BATCH NUMBER
  3. EPIDIOLEX [Suspect]
     Active Substance: CANNABIDIOL
     Indication: Status epilepticus
  4. VIGABATRIN [Concomitant]
     Active Substance: VIGABATRIN
     Indication: Product used for unknown indication
     Dosage: 3500 MILLIGRAM, QD (1500 MG IN THE MORNING AND 2000 MG IN THE EVENING) AND DOSE INCREASED TO 2000 MG
     Route: 065

REACTIONS (3)
  - Status epilepticus [Recovered/Resolved]
  - Status epilepticus [Unknown]
  - Seizure [Unknown]

NARRATIVE: CASE EVENT DATE: 20210101
